FAERS Safety Report 8235389-9 (Version None)
Quarter: 2012Q1

REPORT INFORMATION
  Report Type: 
  Country: None (occurrence: None)
  Receive Date: 20120326
  Receipt Date: 20120320
  Transmission Date: 20120608
  Serious: Yes (Other)
  Sender: FDA-Public Use
  Company Number: US-PFIZER INC-2012073599

PATIENT
  Sex: Male
  Weight: 120 kg

DRUGS (2)
  1. GLIPIZIDE [Suspect]
     Indication: BLOOD GLUCOSE INCREASED
     Dosage: 5 MG, 1X/DAY
     Route: 048
     Dates: start: 20070101
  2. GLIPIZIDE [Suspect]
     Dosage: 5 MG, 2X/DAY
     Route: 048

REACTIONS (1)
  - BLOOD GLUCOSE INCREASED [None]
